FAERS Safety Report 8397035-3 (Version None)
Quarter: 2012Q2

REPORT INFORMATION
  Report Type: 
  Country: None (occurrence: None)
  Receive Date: 20120530
  Receipt Date: 20120523
  Transmission Date: 20120825
  Serious: No
  Sender: FDA-Public Use
  Company Number: US-BAYER-2012-052772

PATIENT
  Age: 76 Year
  Sex: Female
  Weight: 50 kg

DRUGS (5)
  1. HYDROCHLOROTHIAZIDE [Concomitant]
  2. XANAX [Concomitant]
  3. ZIAC [Concomitant]
  4. ALEVE (CAPLET) [Suspect]
     Indication: BACK PAIN
     Dosage: UNK
     Route: 048
     Dates: start: 20120511, end: 20120522
  5. ACETAMINOPHEN [Concomitant]

REACTIONS (1)
  - OEDEMA PERIPHERAL [None]
